FAERS Safety Report 7650942-9 (Version None)
Quarter: 2011Q3

REPORT INFORMATION
  Report Type: 
  Country: None (occurrence: None)
  Receive Date: 20110802
  Receipt Date: 20110721
  Transmission Date: 20111222
  Serious: Yes (Other)
  Sender: FDA-Public Use
  Company Number: US-PFIZER INC-2011173541

PATIENT
  Age: 64 Year
  Sex: Female

DRUGS (8)
  1. NORVASC [Interacting]
     Indication: BLOOD PRESSURE ABNORMAL
     Dosage: 10 MG, DAILY
     Route: 048
  2. KLOR-CON [Interacting]
     Indication: MINERAL SUPPLEMENTATION
     Dosage: 10 MG, 2X/DAY
     Route: 065
     Dates: end: 20110421
  3. BENICAR [Interacting]
     Indication: PRODUCT USED FOR UNKNOWN INDICATION
     Dosage: 40 MG, DAILY
     Route: 048
  4. KLOR-CON [Interacting]
     Dosage: 10 MG, DAILY
     Dates: start: 20110422
  5. METFFORMIN HYDROCHLORIDE [Interacting]
     Indication: DIABETES MELLITUS
     Dosage: 500 MG, DAILY
     Route: 048
  6. TENORMIN [Suspect]
     Indication: BLOOD PRESSURE ABNORMAL
     Dosage: 50 MG, 2X/DAY
     Route: 048
  7. LIPITOR [Interacting]
     Indication: BLOOD CHOLESTEROL INCREASED
     Dosage: 20 MG, DAILY
     Route: 048
     Dates: start: 20110301, end: 20110527
  8. TRICOR [Interacting]
     Indication: PRODUCT USED FOR UNKNOWN INDICATION
     Dosage: 145 MG DAILY
     Route: 048

REACTIONS (5)
  - MYALGIA [None]
  - ACTIVITIES OF DAILY LIVING IMPAIRED [None]
  - OEDEMA PERIPHERAL [None]
  - DRUG INEFFECTIVE [None]
  - DRUG INTERACTION [None]
